FAERS Safety Report 14037383 (Version 2)
Quarter: 2017Q4

REPORT INFORMATION
  Report Type: Other
  Country: JP (occurrence: JP)
  Receive Date: 20171004
  Receipt Date: 20171016
  Transmission Date: 20180321
  Serious: Yes (Other)
  Sender: FDA-Public Use
  Company Number: JP-ACTELION-A-CH2017-160114

PATIENT
  Age: 24 Day
  Sex: Male

DRUGS (4)
  1. SIVELESTAT [Concomitant]
     Active Substance: SIVELESTAT
  2. ADRENALINE [Concomitant]
     Active Substance: EPINEPHRINE
  3. TRACLEER [Suspect]
     Active Substance: BOSENTAN
     Indication: PULMONARY HYPERTENSION
     Route: 048
  4. VASOPRESSIN. [Concomitant]
     Active Substance: VASOPRESSIN

REACTIONS (3)
  - Oxygen saturation abnormal [Unknown]
  - Staphylococcal infection [Unknown]
  - Respiratory failure [Unknown]
